FAERS Safety Report 14393611 (Version 1)
Quarter: 2018Q1

REPORT INFORMATION
  Report Type: Spontaneous
  Country: US (occurrence: US)
  Receive Date: 20180115
  Receipt Date: 20180115
  Transmission Date: 20180509
  Serious: Yes (Other)
  Sender: FDA-Public Use
  Company Number: None

PATIENT
  Age: 65 Year
  Sex: Female
  Weight: 44.1 kg

DRUGS (1)
  1. LEVOFLOXACIN. [Suspect]
     Active Substance: LEVOFLOXACIN
     Indication: SINUSITIS
     Dosage: ?          QUANTITY:1 TABLET(S);?
     Route: 048
     Dates: start: 20170304, end: 20170310

REACTIONS (5)
  - Burning sensation [None]
  - Anxiety [None]
  - Pain in extremity [None]
  - Gait inability [None]
  - Weight decreased [None]

NARRATIVE: CASE EVENT DATE: 20170310
